FAERS Safety Report 16066099 (Version 1)
Quarter: 2019Q2

REPORT INFORMATION
  Report Type: Spontaneous
  Country: US (occurrence: US)
  Receive Date: 20190312
  Receipt Date: 20190312
  Transmission Date: 20190711
  Serious: Yes (Hospitalization, Other)
  Sender: FDA-Public Use
  Company Number: None

PATIENT
  Age: 54 Year
  Sex: Male
  Weight: 126.45 kg

DRUGS (9)
  1. YESCARTA [Suspect]
     Active Substance: AXICABTAGENE CILOLEUCEL
     Indication: DIFFUSE LARGE B-CELL LYMPHOMA
     Dosage: ?          OTHER FREQUENCY:ONCE;?
     Route: 041
     Dates: start: 20181210
  2. AMPHETAMINE-DEXTROAMPHETAMINE [Concomitant]
     Active Substance: AMPHETAMINE SULFATE\DEXTROAMPHETAMINE
     Dates: start: 20181210
  3. AZTREONAM. [Concomitant]
     Active Substance: AZTREONAM
     Dates: start: 20181216, end: 20181216
  4. CITALOPRAM [Concomitant]
     Active Substance: CITALOPRAM HYDROBROMIDE
     Dates: start: 20181210
  5. LEVETIRACETAM. [Concomitant]
     Active Substance: LEVETIRACETAM
     Dates: start: 20181216, end: 20190104
  6. VANCOMYCIN [Concomitant]
     Active Substance: VANCOMYCIN
     Dates: start: 20181216, end: 20181218
  7. MONTELUKAST [Concomitant]
     Active Substance: MONTELUKAST SODIUM
     Dates: start: 20181102
  8. PANTOPRAZOLE [Concomitant]
     Active Substance: PANTOPRAZOLE
     Dates: start: 20181209, end: 20190104
  9. MULTIVITAMIN [Concomitant]
     Active Substance: VITAMINS
     Dates: start: 20181210, end: 20181220

REACTIONS (2)
  - Cytokine release syndrome [None]
  - Unevaluable event [None]

NARRATIVE: CASE EVENT DATE: 20181216
